FAERS Safety Report 9474073 (Version 1)
Quarter: 2013Q3

REPORT INFORMATION
  Report Type: Spontaneous
  Country: IT (occurrence: IT)
  Receive Date: 20130823
  Receipt Date: 20130823
  Transmission Date: 20140515
  Serious: Yes (Other)
  Sender: FDA-Public Use
  Company Number: IT-TEVA-427541ISR

PATIENT
  Age: 86 Year
  Sex: Male

DRUGS (4)
  1. METFORMINA CLORIDRATO [Suspect]
     Dosage: 1500 MILLIGRAM DAILY;
     Route: 048
     Dates: start: 20120501, end: 20130430
  2. SOLOSA 3MG [Suspect]
     Dosage: 1 DOSAGE FORMS DAILY;
     Route: 048
     Dates: start: 20120501, end: 20130430
  3. FUROSEMIDE [Concomitant]
  4. LANSOPRAZOLO [Concomitant]

REACTIONS (1)
  - Hypoglycaemic coma [Recovering/Resolving]
